FAERS Safety Report 5595444-9 (Version None)
Quarter: 2008Q1

REPORT INFORMATION
  Report Type: 
  Country: None (occurrence: None)
  Receive Date: 20080118
  Receipt Date: 20080108
  Transmission Date: 20080703
  Serious: Yes (Other)
  Sender: FDA-Public Use
  Company Number: GB-BAYER-200810435GPV

PATIENT
  Age: 32 Year
  Sex: Male

DRUGS (3)
  1. FLUDARABINE PHOSPHATE [Suspect]
     Indication: BONE MARROW CONDITIONING REGIMEN
  2. ALEMTUZUMAB [Suspect]
     Indication: BONE MARROW CONDITIONING REGIMEN
  3. CYCLOPHOSPHAMIDE [Suspect]
     Indication: BONE MARROW CONDITIONING REGIMEN

REACTIONS (3)
  - ACUTE MYELOID LEUKAEMIA [None]
  - APLASTIC ANAEMIA [None]
  - TRANSPLANT FAILURE [None]
